FAERS Safety Report 6240276-1 (Version None)
Quarter: 2009Q2

REPORT INFORMATION
  Report Type: 
  Country: None (occurrence: None)
  Receive Date: 20090623
  Receipt Date: 20080527
  Transmission Date: 20091009
  Serious: No
  Sender: FDA-Public Use
  Company Number: US-ASTRAZENECA-2008UW10784

PATIENT
  Age: 10 Year
  Sex: Female

DRUGS (1)
  1. PULMICORT FLEXHALER [Suspect]
     Dosage: 180 UG, ONE INHALATION TWICE DAILY
     Route: 055
     Dates: start: 20080525

REACTIONS (2)
  - NASAL CONGESTION [None]
  - PRURITUS [None]
